FAERS Safety Report 25441865 (Version 1)
Quarter: 2025Q2

REPORT INFORMATION
  Report Type: Spontaneous
  Country: IT (occurrence: IT)
  Receive Date: 20250616
  Receipt Date: 20250616
  Transmission Date: 20250716
  Serious: Yes (Other)
  Sender: BRACCO
  Company Number: IT-BRACCO-2025IT03902

PATIENT
  Age: 51 Year
  Sex: Female

DRUGS (1)
  1. PROHANCE [Suspect]
     Active Substance: GADOTERIDOL
     Indication: Magnetic resonance imaging
     Route: 042
     Dates: start: 20250611, end: 20250611

REACTIONS (2)
  - Rash [Recovering/Resolving]
  - Glottal incompetence [Recovering/Resolving]

NARRATIVE: CASE EVENT DATE: 20250611
